FAERS Safety Report 8368795-2 (Version None)
Quarter: 2012Q2

REPORT INFORMATION
  Report Type: 
  Country: None (occurrence: None)
  Receive Date: 20120518
  Receipt Date: 20050221
  Transmission Date: 20120825
  Serious: No
  Sender: FDA-Public Use
  Company Number: 2005BI004241

PATIENT
  Age: 29 Year
  Sex: Male

DRUGS (2)
  1. TYSABRI [Suspect]
     Route: 042
     Dates: start: 20070122
  2. TYSABRI [Suspect]
     Indication: MULTIPLE SCLEROSIS
     Route: 042
     Dates: start: 20050105, end: 20050205

REACTIONS (1)
  - HEADACHE [None]
